FAERS Safety Report 11285645 (Version 3)
Quarter: 2015Q3

REPORT INFORMATION
  Report Type: Spontaneous
  Country: JP (occurrence: JP)
  Receive Date: 20150721
  Receipt Date: 20150917
  Transmission Date: 20151125
  Serious: No
  Sender: FDA-Public Use
  Company Number: JP-009507513-1507JPN007781

PATIENT
  Sex: Female

DRUGS (2)
  1. MENESIT TABLETS - 100 [Suspect]
     Active Substance: CARBIDOPA\LEVODOPA
     Dosage: 200 MG, TID (TWO TABLETS THREE TIMES A DAY)
     Route: 048
  2. MENESIT TABLETS - 100 [Suspect]
     Active Substance: CARBIDOPA\LEVODOPA
     Dosage: 100 MG, TID (ONE TABLET THREE TIMES A DAY)
     Route: 048

REACTIONS (6)
  - Eating disorder [Unknown]
  - Tremor [Unknown]
  - Anxiety [Unknown]
  - Malaise [Unknown]
  - Drug dose omission [Unknown]
  - Asthenia [Unknown]
